FAERS Safety Report 6166151-9 (Version None)
Quarter: 2009Q2

REPORT INFORMATION
  Report Type: 
  Country: None (occurrence: None)
  Receive Date: 20090424
  Receipt Date: 20090417
  Transmission Date: 20091009
  Serious: Yes (Other)
  Sender: FDA-Public Use
  Company Number: JP-ASTRAZENECA-2009AP02585

PATIENT
  Age: 70 Year
  Sex: Female

DRUGS (5)
  1. OMEPRAL [Suspect]
     Dosage: DOSE UNKNOWN
     Route: 048
     Dates: start: 20090412
  2. BUP-4 [Suspect]
     Dosage: DOSE UNKNOWN
     Route: 048
     Dates: start: 20090412
  3. ASPIRIN [Concomitant]
     Dosage: DOSE UNKNOWN
     Route: 048
  4. DIOVAN [Concomitant]
     Dosage: DOSE UNKNOWN
     Route: 048
  5. MARZULENE [Concomitant]
     Dosage: DOSE UNKNOWN
     Route: 048

REACTIONS (3)
  - ABNORMAL BEHAVIOUR [None]
  - IRRITABILITY [None]
  - LOSS OF CONSCIOUSNESS [None]
